FAERS Safety Report 9248790 (Version 1)
Quarter: 2013Q1

REPORT INFORMATION
  Report Type: Spontaneous
  Country: US (occurrence: None)
  Receive Date: 20130305
  Receipt Date: 20130305
  Transmission Date: 20140127
  Serious: Yes (Other)
  Sender: FDA-Public Use
  Company Number: 163-21880-12101287

PATIENT
  Age: 73 Year
  Sex: Female

DRUGS (5)
  1. REVLIMID [Suspect]
     Indication: PLASMA CELL MYELOMA
     Dosage: 25 MG, 21 IN 21 D, PO
     Route: 048
     Dates: start: 201001
  2. DEXAMETHASONE (DEXAMETHASONE) [Concomitant]
  3. SUDAFED (PSEUDOEPHEDRINE HYDROCHLORIDE) [Concomitant]
  4. IBUPROFEN (IBUPROFEN) [Concomitant]
  5. VITAMINS [Concomitant]

REACTIONS (2)
  - Monoclonal immunoglobulin present [None]
  - Drug ineffective [None]
